FAERS Safety Report 16453522 (Version 2)
Quarter: 2019Q3

REPORT INFORMATION
  Report Type: Spontaneous
  Country: US (occurrence: US)
  Receive Date: 20190619
  Receipt Date: 20190711
  Transmission Date: 20191004
  Serious: Yes (Hospitalization)
  Sender: FDA-Public Use
  Company Number: US-SA-2019SA164261

PATIENT
  Age: 71 Year
  Sex: Male

DRUGS (2)
  1. CEREZYME [Suspect]
     Active Substance: IMIGLUCERASE
     Dosage: 6000 UNITS, QOW
     Route: 041
     Dates: start: 20060606
  2. CEREZYME [Suspect]
     Active Substance: IMIGLUCERASE
     Dosage: 15 DF, QOW
     Route: 041
     Dates: start: 20060606

REACTIONS (3)
  - Cardiac ablation [Unknown]
  - Weight decreased [Unknown]
  - Malaise [Unknown]

NARRATIVE: CASE EVENT DATE: 20190528
